FAERS Safety Report 19222385 (Version 2)
Quarter: 2021Q2

REPORT INFORMATION
  Report Type: Report from Study
  Country: US (occurrence: US)
  Receive Date: 20210506
  Receipt Date: 20210528
  Transmission Date: 20210717
  Serious: Yes (Hospitalization)
  Sender: FDA-Public Use
  Company Number: US-GILEAD-2021-0528619

PATIENT
  Age: 66 Year
  Sex: Male
  Weight: 139.68 kg

DRUGS (20)
  1. NOVOLOG [Concomitant]
     Active Substance: INSULIN ASPART
  2. AMBRISENTAN [Suspect]
     Active Substance: AMBRISENTAN
     Indication: PULMONARY HYPERTENSION
     Dosage: 10 MG, QD
     Route: 048
  3. FARXIGA [Concomitant]
     Active Substance: DAPAGLIFLOZIN PROPANEDIOL
  4. FOLIC ACID. [Concomitant]
     Active Substance: FOLIC ACID
  5. CELEXA [CELECOXIB] [Concomitant]
     Active Substance: CELECOXIB
  6. ZESTRIL [Concomitant]
     Active Substance: LISINOPRIL
  7. ATIVAN [Concomitant]
     Active Substance: LORAZEPAM
  8. CARAFATE [Concomitant]
     Active Substance: SUCRALFATE
  9. ASPIRIN [ACETYLSALICYLIC ACID] [Concomitant]
     Active Substance: ASPIRIN
  10. ALPHAGAN P [Concomitant]
     Active Substance: BRIMONIDINE TARTRATE
  11. KLOR?CON [Concomitant]
     Active Substance: POTASSIUM CHLORIDE
  12. PEPCID [Concomitant]
     Active Substance: FAMOTIDINE
  13. SILDENAFIL. [Suspect]
     Active Substance: SILDENAFIL
     Indication: PULMONARY ARTERIAL HYPERTENSION
     Dosage: 40 MG
     Route: 048
     Dates: start: 200711, end: 20210504
  14. BUMEX [Concomitant]
     Active Substance: BUMETANIDE
  15. BASAGLAR [Concomitant]
     Active Substance: INSULIN GLARGINE
  16. PRILOSEC [Concomitant]
     Active Substance: OMEPRAZOLE MAGNESIUM
  17. ADCIRCA [Concomitant]
     Active Substance: TADALAFIL
  18. PROAIR HFA [Concomitant]
     Active Substance: ALBUTEROL SULFATE
  19. LIPITOR [Concomitant]
     Active Substance: ATORVASTATIN CALCIUM
  20. TOPROL XL [Concomitant]
     Active Substance: METOPROLOL SUCCINATE

REACTIONS (4)
  - Dizziness [Not Recovered/Not Resolved]
  - Catheterisation cardiac [Recovered/Resolved]
  - Palpitations [Not Recovered/Not Resolved]
  - Pulmonary arterial pressure increased [Unknown]

NARRATIVE: CASE EVENT DATE: 20210502
